FAERS Safety Report 19460914 (Version 1)
Quarter: 2021Q2

REPORT INFORMATION
  Report Type: Spontaneous
  Country: FR (occurrence: FR)
  Receive Date: 20210625
  Receipt Date: 20210625
  Transmission Date: 20210717
  Serious: Yes (Other)
  Sender: FDA-Public Use
  Company Number: FR-ROCHE-2857437

PATIENT
  Sex: Male

DRUGS (2)
  1. RITUXIMAB. [Suspect]
     Active Substance: RITUXIMAB
     Indication: AUTOIMMUNE HAEMOLYTIC ANAEMIA
     Dosage: 4 WEEKLY CURES OF 450 MG / M2?MOST RECENT DOSE RECEIVED ON AN UNSPECIFIED DATE IN 2018
     Route: 065
     Dates: start: 2018
  2. RITUXIMAB. [Suspect]
     Active Substance: RITUXIMAB
     Dosage: 4 WEEKLY CURES OF 450 MG / M2
     Route: 065
     Dates: start: 2017, end: 2017

REACTIONS (1)
  - Congestive cardiomyopathy [Not Recovered/Not Resolved]

NARRATIVE: CASE EVENT DATE: 2018
